FAERS Safety Report 6612281-4 (Version None)
Quarter: 2010Q1

REPORT INFORMATION
  Report Type: 
  Country: None (occurrence: None)
  Receive Date: 20100303
  Receipt Date: 20100226
  Transmission Date: 20100710
  Serious: Yes (Other)
  Sender: FDA-Public Use
  Company Number: CHPA2009US01477

PATIENT
  Age: 52 Year
  Sex: Male

DRUGS (2)
  1. VOLTAREN [Suspect]
     Indication: INFLAMMATION
     Dosage: 2 G, TID
     Route: 061
     Dates: start: 20090121, end: 20090123
  2. VOLTAREN [Suspect]
     Indication: SUTURE RELATED COMPLICATION

REACTIONS (9)
  - APPLICATION SITE DISCOLOURATION [None]
  - APPLICATION SITE PAIN [None]
  - BURNING SENSATION [None]
  - DRUG ADMINISTERED AT INAPPROPRIATE SITE [None]
  - INCISION SITE HAEMORRHAGE [None]
  - OFF LABEL USE [None]
  - SKIN EXFOLIATION [None]
  - SUTURE RUPTURE [None]
  - WRONG TECHNIQUE IN DRUG USAGE PROCESS [None]
